FAERS Safety Report 9000198 (Version 1)
Quarter: 2013Q1

REPORT INFORMATION
  Report Type: Spontaneous
  Country: FR (occurrence: FR)
  Receive Date: 20130102
  Receipt Date: 20130102
  Transmission Date: 20140127
  Serious: Yes (Life-Threatening)
  Sender: FDA-Public Use
  Company Number: FR-JNJFOC-20121210063

PATIENT
  Age: 45 Year
  Sex: Female

DRUGS (6)
  1. HALDOL [Suspect]
     Indication: PRODUCT USED FOR UNKNOWN INDICATION
     Dosage: LONG TERM THERAPY
     Route: 048
     Dates: end: 20121012
  2. DIPIPERON [Suspect]
     Indication: PRODUCT USED FOR UNKNOWN INDICATION
     Dosage: LONG TERM THERAPY
     Route: 048
     Dates: end: 20121012
  3. COTAREG [Suspect]
     Indication: PRODUCT USED FOR UNKNOWN INDICATION
     Dosage: DOSE: 80MG/12.5 MG
     Route: 048
     Dates: end: 20121012
  4. CERAZETTE [Concomitant]
     Indication: PRODUCT USED FOR UNKNOWN INDICATION
     Dosage: LONG TERM THERAPY
     Route: 065
  5. PROZAC [Concomitant]
     Indication: PRODUCT USED FOR UNKNOWN INDICATION
     Dosage: LONG TERM THERAPY
     Route: 065
  6. XANAX [Concomitant]
     Indication: PRODUCT USED FOR UNKNOWN INDICATION
     Dosage: LONT TERM THERAPY
     Route: 065

REACTIONS (4)
  - Torsade de pointes [Recovered/Resolved]
  - Hypokalaemia [Recovered/Resolved]
  - Cardiac arrest [Recovered/Resolved]
  - Coma [Recovered/Resolved]
